FAERS Safety Report 5500077-6 (Version None)
Quarter: 2007Q4

REPORT INFORMATION
  Report Type: 
  Country: None (occurrence: None)
  Receive Date: 20071024
  Receipt Date: 20071009
  Transmission Date: 20080405
  Serious: Yes (Disabling, Other)
  Sender: FDA-Public Use
  Company Number: 100#08#2007-04079

PATIENT
  Age: 7 Year
  Sex: Male

DRUGS (4)
  1. METHOTREXATE [Suspect]
     Indication: ACUTE LYMPHOCYTIC LEUKAEMIA
     Dosage: INTRATHECAL; ORAL
     Route: 037
  2. CYTARABINE [Concomitant]
  3. PREDNISOLONE [Concomitant]
  4. 6-MERCAPTOPURINE (MERCAPTOPURINE) (6-MERCAPTOPURINE) [Concomitant]

REACTIONS (14)
  - AREFLEXIA [None]
  - ARTHRALGIA [None]
  - CENTRAL NERVOUS SYSTEM LESION [None]
  - DYSURIA [None]
  - FEMUR FRACTURE [None]
  - LEUKAEMIA RECURRENT [None]
  - MENINGISM [None]
  - MONOPARESIS [None]
  - NEUROTOXICITY [None]
  - PARAPLEGIA [None]
  - PATHOLOGICAL FRACTURE [None]
  - PYREXIA [None]
  - RESIDUAL URINE [None]
  - SENSORY LOSS [None]
